FAERS Safety Report 4834104-6 (Version None)
Quarter: 2005Q4

REPORT INFORMATION
  Report Type: 
  Country: None (occurrence: None)
  Receive Date: 20051122
  Receipt Date: 20050923
  Transmission Date: 20060501
  Serious: Yes (Death)
  Sender: FDA-Public Use
  Company Number: 200513135FR

PATIENT
  Age: 79 Year
  Sex: Male
  Weight: 70 kg

DRUGS (11)
  1. KETEK [Suspect]
     Indication: BRONCHITIS ACUTE
     Route: 048
     Dates: start: 20050419, end: 20050421
  2. EUPHYLLINE [Concomitant]
     Indication: BRONCHITIS ACUTE
     Route: 048
     Dates: end: 20050421
  3. METFORMINE [Concomitant]
     Indication: DIABETES MELLITUS NON-INSULIN-DEPENDENT
     Route: 048
     Dates: end: 20050421
  4. PULMICORT [Concomitant]
     Indication: BRONCHITIS ACUTE
     Route: 055
     Dates: end: 20050421
  5. BRONCHODUAL [Concomitant]
     Indication: BRONCHITIS ACUTE
     Route: 055
     Dates: end: 20050421
  6. DIGOXIN [Concomitant]
     Route: 048
     Dates: end: 20050421
  7. DIAMICRON [Concomitant]
     Indication: DIABETES MELLITUS NON-INSULIN-DEPENDENT
     Route: 048
     Dates: end: 20050421
  8. KARDEGIC [Concomitant]
     Route: 048
     Dates: end: 20050421
  9. LASILIX [Concomitant]
     Route: 048
     Dates: end: 20050421
  10. CELESTENE [Concomitant]
     Route: 048
     Dates: end: 20050421
  11. EXOMUC [Concomitant]
     Dates: end: 20050421

REACTIONS (2)
  - LOSS OF CONSCIOUSNESS [None]
  - SUDDEN DEATH [None]
